FAERS Safety Report 25567302 (Version 1)
Quarter: 2025Q3

REPORT INFORMATION
  Report Type: Spontaneous
  Country: US (occurrence: None)
  Receive Date: 20250716
  Receipt Date: 20250716
  Transmission Date: 20251020
  Serious: Yes (Other)
  Sender: FDA-CTU
  Company Number: None

PATIENT
  Age: 12 Year
  Sex: Female
  Weight: 67.5 kg

DRUGS (1)
  1. CLONIDINE [Suspect]
     Active Substance: CLONIDINE
     Indication: Autism spectrum disorder
     Dates: start: 20250714, end: 20250716

REACTIONS (2)
  - Insomnia [None]
  - Rebound effect [None]

NARRATIVE: CASE EVENT DATE: 20250714
